FAERS Safety Report 13854641 (Version 1)
Quarter: 2017Q3

REPORT INFORMATION
  Report Type: Spontaneous
  Country: US (occurrence: US)
  Receive Date: 20170810
  Receipt Date: 20170810
  Transmission Date: 20171127
  Serious: Yes (Hospitalization)
  Sender: FDA-Public Use
  Company Number: US-PFIZER INC-2017340721

PATIENT
  Sex: Female

DRUGS (3)
  1. CYTOMEL [Suspect]
     Active Substance: LIOTHYRONINE SODIUM
     Dosage: UNK
  2. XANAX [Suspect]
     Active Substance: ALPRAZOLAM
     Dosage: UNK
  3. FENTANYL CITRATE. [Suspect]
     Active Substance: FENTANYL CITRATE
     Dosage: UNK

REACTIONS (14)
  - Hypotension [Unknown]
  - Feeling abnormal [Unknown]
  - Emotional distress [Unknown]
  - Joint range of motion decreased [Unknown]
  - Arthralgia [Unknown]
  - Musculoskeletal stiffness [Unknown]
  - Swelling [Unknown]
  - Heart rate increased [Unknown]
  - Asthenia [Unknown]
  - Back pain [Unknown]
  - Vomiting [Unknown]
  - Insomnia [Unknown]
  - Sepsis [Unknown]
  - Diabetic ketoacidosis [Unknown]
